FAERS Safety Report 21644548 (Version 1)
Quarter: 2022Q4

REPORT INFORMATION
  Report Type: Report from Study
  Country: US (occurrence: US)
  Receive Date: 20221125
  Receipt Date: 20221125
  Transmission Date: 20230112
  Serious: Yes (Other)
  Sender: FDA-Public Use
  Company Number: US-JNJFOC-20221141795

PATIENT
  Sex: Female

DRUGS (4)
  1. STELARA [Suspect]
     Active Substance: USTEKINUMAB
     Indication: Crohn^s disease
     Route: 058
  2. STELARA [Suspect]
     Active Substance: USTEKINUMAB
     Route: 058
  3. REMICADE [Suspect]
     Active Substance: INFLIXIMAB
     Indication: Product used for unknown indication
     Route: 041
  4. METHOTREXATE [Concomitant]
     Active Substance: METHOTREXATE

REACTIONS (19)
  - Invasive lobular breast carcinoma [Unknown]
  - Syncope [Unknown]
  - Thrombosis [Unknown]
  - Precancerous condition [Unknown]
  - Spinal cord compression [Unknown]
  - Paralysis [Unknown]
  - Faecaloma [Unknown]
  - Nephrolithiasis [Unknown]
  - Anaemia [Unknown]
  - Bone marrow disorder [Unknown]
  - Crohn^s disease [Unknown]
  - Arthritis enteropathic [Unknown]
  - Urinary tract infection [Unknown]
  - Hepatic vascular disorder [Unknown]
  - Vertebral lesion [Unknown]
  - Product dose omission issue [Unknown]
  - Off label use [Unknown]
  - Palpitations [Unknown]
  - Anxiety [Unknown]
